FAERS Safety Report 5826795-8 (Version None)
Quarter: 2008Q3

REPORT INFORMATION
  Report Type: 
  Country: None (occurrence: None)
  Receive Date: 20080728
  Receipt Date: 20080728
  Transmission Date: 20090109
  Serious: No
  Sender: FDA-Public Use
  Company Number: None

PATIENT
  Sex: Female

DRUGS (2)
  1. CEFTRIAXONE [Suspect]
     Indication: INFECTION
     Dosage: 2 GM IV QD
     Route: 042
     Dates: start: 20080710
  2. CEFTRIAXONE [Suspect]
     Indication: INFECTION
     Dosage: 2 GM IV QD
     Route: 042
     Dates: start: 20080725

REACTIONS (1)
  - THROMBOCYTOPENIA [None]
